FAERS Safety Report 14663575 (Version 1)
Quarter: 2018Q1

REPORT INFORMATION
  Report Type: Spontaneous
  Country: US (occurrence: US)
  Receive Date: 20180321
  Receipt Date: 20180321
  Transmission Date: 20180509
  Serious: No
  Sender: FDA-Public Use
  Company Number: US-PFIZER INC-2018118060

PATIENT
  Age: 39 Year
  Sex: Female

DRUGS (1)
  1. METHOTREXATE SODIUM. [Suspect]
     Active Substance: METHOTREXATE SODIUM
     Dosage: 1 ML, WEEKLY

REACTIONS (9)
  - Fatigue [Unknown]
  - Panic attack [Unknown]
  - Fear of injection [Unknown]
  - Pain in extremity [Unknown]
  - Intentional dose omission [Unknown]
  - Joint swelling [Unknown]
  - Arthralgia [Unknown]
  - Peripheral swelling [Unknown]
  - Musculoskeletal stiffness [Unknown]
